FAERS Safety Report 5215663-0 (Version None)
Quarter: 2007Q1

REPORT INFORMATION
  Report Type: 
  Country: None (occurrence: None)
  Receive Date: 20070123
  Receipt Date: 20070117
  Transmission Date: 20070707
  Serious: Yes (Hospitalization)
  Sender: FDA-Public Use
  Company Number: US-ELI_LILLY_AND_COMPANY-US200609003517

PATIENT
  Age: 44 Year
  Sex: Female
  Weight: 79.365 kg

DRUGS (1)
  1. ZYPREXA [Suspect]
     Dosage: 20 MG, UNK
     Dates: start: 20000101, end: 20030101

REACTIONS (2)
  - DIABETES MELLITUS [None]
  - THROMBOSIS [None]
